FAERS Safety Report 8732761 (Version 2)
Quarter: 2013Q1

REPORT INFORMATION
  Report Type: Spontaneous
  Country: US (occurrence: US)
  Receive Date: 20120820
  Receipt Date: 20130226
  Transmission Date: 20140127
  Serious: Yes (Hospitalization, Other)
  Sender: FDA-Public Use
  Company Number: US-ROCHE-1061708

PATIENT
  Age: 33 Year
  Sex: Female
  Weight: 54.48 kg

DRUGS (3)
  1. ACCUTANE [Suspect]
     Indication: ACNE
     Route: 065
     Dates: start: 20010409, end: 20010816
  2. ACCUTANE [Suspect]
     Indication: FURUNCLE
     Route: 065
     Dates: end: 20010916
  3. DEPO-PROVERA [Concomitant]

REACTIONS (7)
  - Inflammatory bowel disease [Unknown]
  - Crohn^s disease [Unknown]
  - Depression [Unknown]
  - Mental disorder [Unknown]
  - Intestinal obstruction [Unknown]
  - Dry skin [Unknown]
  - Eye irritation [Unknown]
